FAERS Safety Report 19963078 (Version 1)
Quarter: 2021Q4

REPORT INFORMATION
  Report Type: Spontaneous
  Country: US (occurrence: US)
  Receive Date: 20211018
  Receipt Date: 20211018
  Transmission Date: 20220304
  Serious: No
  Sender: FDA-Public Use
  Company Number: US-BIOGENIDEC-2010BI011966

PATIENT
  Age: 40 Year
  Sex: Female

DRUGS (2)
  1. TYSABRI [Suspect]
     Active Substance: NATALIZUMAB
     Indication: Multiple sclerosis
     Route: 042
     Dates: start: 20080909
  2. TYSABRI [Suspect]
     Active Substance: NATALIZUMAB
     Route: 042
     Dates: start: 20210712

REACTIONS (5)
  - Pain in extremity [Not Recovered/Not Resolved]
  - Pyrexia [Unknown]
  - Amnesia [Unknown]
  - Aggression [Unknown]
  - Somnolence [Unknown]

NARRATIVE: CASE EVENT DATE: 20090901
